FAERS Safety Report 26190357 (Version 1)
Quarter: 2025Q4

REPORT INFORMATION
  Report Type: Spontaneous
  Country: GB (occurrence: GB)
  Receive Date: 20251223
  Receipt Date: 20251223
  Transmission Date: 20260117
  Serious: Yes (Other)
  Sender: ALEXION PHARMACEUTICALS
  Company Number: None

PATIENT
  Age: 8 Year
  Sex: Male
  Weight: 22 kg

DRUGS (9)
  1. SYMBICORT [Suspect]
     Active Substance: BUDESONIDE\FORMOTEROL FUMARATE DIHYDRATE
     Indication: Ill-defined disorder
     Dosage: INHALE ONE PUFF
     Route: 065
     Dates: start: 20251028
  2. SYMBICORT [Suspect]
     Active Substance: BUDESONIDE\FORMOTEROL FUMARATE DIHYDRATE
     Dosage: INHALE ONE PUFF
     Dates: start: 20250924, end: 20250924
  3. AMOXICILLIN [Concomitant]
     Active Substance: AMOXICILLIN
     Indication: Ill-defined disorder
     Dosage: TAKE 10ML THREE TIMES A DAY FOR 5 DAYS, TO TREA...
     Route: 065
  4. Cetraben [Concomitant]
     Indication: Ill-defined disorder
     Dosage: APPLY TWO TO FOUR TIMES A DAY OR WHEN REQUIRED ...
     Route: 065
  5. HYDROCORTISONE [Concomitant]
     Active Substance: HYDROCORTISONE
     Indication: Ill-defined disorder
     Dosage: TO BE APPLIED THINLY TO THE AFFECTED AREA(S) TW...
     Route: 065
  6. BECLOMETHASONE DIPROPIONATE [Concomitant]
     Active Substance: BECLOMETHASONE DIPROPIONATE
     Indication: Ill-defined disorder
     Dosage: INHALE ONE PUFF TWICE DAILY (PLEASE RETURN YOUR...
     Route: 065
  7. EASYHALER [Concomitant]
     Indication: Ill-defined disorder
     Dosage: INHALE ONE TO TWO DOSES AS NEEDED (PLEASE RETUR...
     Route: 065
  8. MINERAL OIL\PARAFFIN [Concomitant]
     Active Substance: MINERAL OIL\PARAFFIN
     Indication: Ill-defined disorder
     Dosage: USE AS DIRECTED
     Route: 065
  9. Aproderm [Concomitant]
     Indication: Ill-defined disorder
     Dosage: USE AS DIRECTED
     Route: 065

REACTIONS (2)
  - Dyspnoea [Recovered/Resolved]
  - Wheezing [Recovered/Resolved]

NARRATIVE: CASE EVENT DATE: 20250924
